FAERS Safety Report 23609447 (Version 1)
Quarter: 2024Q1

REPORT INFORMATION
  Report Type: Spontaneous
  Country: FR (occurrence: FR)
  Receive Date: 20240308
  Receipt Date: 20240308
  Transmission Date: 20240410
  Serious: Yes (Other)
  Sender: FDA-Public Use
  Company Number: FR-RECORDATI-2023004757

PATIENT
  Age: 77 Year
  Sex: Female
  Weight: 52 kg

DRUGS (6)
  1. ACETAMINOPHEN [Suspect]
     Active Substance: ACETAMINOPHEN
     Indication: Cancer pain
     Route: 065
  2. METHADONE HYDROCHLORIDE [Suspect]
     Active Substance: METHADONE HYDROCHLORIDE
     Indication: Cancer pain
     Dosage: 15 MILLIGRAM, QD
     Route: 065
  3. CORTICOSTEROID NOS [Concomitant]
     Active Substance: CORTICOSTEROID NOS
     Indication: Cancer pain
     Route: 065
  4. OXYCODONE [Concomitant]
     Active Substance: OXYCODONE\OXYCODONE HYDROCHLORIDE
     Dosage: 10 MILLIGRAM, QD
     Route: 048
     Dates: start: 20230106, end: 20230108
  5. OXYCODONE [Concomitant]
     Active Substance: OXYCODONE\OXYCODONE HYDROCHLORIDE
     Dosage: 30 MILLIGRAM, QD
     Route: 048
     Dates: start: 20230105, end: 20230106
  6. OXYCODONE [Concomitant]
     Active Substance: OXYCODONE\OXYCODONE HYDROCHLORIDE
     Indication: Cancer pain
     Dosage: UNK
     Route: 048
     Dates: start: 20220711, end: 20230104

REACTIONS (11)
  - Hypoxia [Unknown]
  - Hallucination [Unknown]
  - Dry mouth [Not Recovered/Not Resolved]
  - Somnolence [Recovered/Resolved]
  - Mucosal inflammation [Not Recovered/Not Resolved]
  - Constipation [Not Recovered/Not Resolved]
  - Nausea [Not Recovered/Not Resolved]
  - Nausea [Recovered/Resolved]
  - Nausea [Recovered/Resolved]
  - Fungal infection [Not Recovered/Not Resolved]
  - Vomiting [Unknown]

NARRATIVE: CASE EVENT DATE: 20220101
